FAERS Safety Report 12600189 (Version 2)
Quarter: 2016Q3

REPORT INFORMATION
  Report Type: Report from Study
  Country: AU (occurrence: AU)
  Receive Date: 20160727
  Receipt Date: 20160902
  Transmission Date: 20161109
  Serious: Yes (Hospitalization, Other)
  Sender: FDA-Public Use
  Company Number: AU-BIOGEN-2016BI00269379

PATIENT
  Age: 54 Year
  Sex: Female

DRUGS (3)
  1. TYSABRI [Suspect]
     Active Substance: NATALIZUMAB
     Indication: MULTIPLE SCLEROSIS
     Route: 042
     Dates: start: 20151211
  2. TYSABRI [Suspect]
     Active Substance: NATALIZUMAB
     Route: 042
     Dates: start: 20151214
  3. TAMOXIFEN [Concomitant]
     Active Substance: TAMOXIFEN
     Indication: PRODUCT USED FOR UNKNOWN INDICATION
     Route: 065

REACTIONS (7)
  - General symptom [Unknown]
  - Mastitis [Recovered/Resolved with Sequelae]
  - Breast ulceration [Recovered/Resolved with Sequelae]
  - Device related infection [Recovered/Resolved]
  - Sepsis [Recovered/Resolved with Sequelae]
  - Multiple sclerosis relapse [Unknown]
  - Mastectomy [Recovered/Resolved with Sequelae]

NARRATIVE: CASE EVENT DATE: 201512
